FAERS Safety Report 5695701-1 (Version None)
Quarter: 2008Q2

REPORT INFORMATION
  Report Type: 
  Country: None (occurrence: None)
  Receive Date: 20080407
  Receipt Date: 20080324
  Transmission Date: 20081010
  Serious: Yes (Hospitalization)
  Sender: FDA-Public Use
  Company Number: ES-ELI_LILLY_AND_COMPANY-ES200803005155

PATIENT
  Age: 40 Year
  Sex: Female

DRUGS (3)
  1. ZYPREXA [Suspect]
     Indication: MANIA
     Dosage: 5 MG, UNK
     Route: 048
     Dates: end: 20071214
  2. PLENUR [Concomitant]
     Indication: MANIA
     Route: 048
     Dates: end: 20071214
  3. IBUPROFENO NORMON [Concomitant]
     Dosage: 5 MG, UNK
     Route: 048
     Dates: end: 20071214

REACTIONS (4)
  - ASTHENIA [None]
  - DYSARTHRIA [None]
  - SOMNOLENCE [None]
  - THERAPEUTIC AGENT TOXICITY [None]
